FAERS Safety Report 17850960 (Version 1)
Quarter: 2020Q2

REPORT INFORMATION
  Report Type: Spontaneous
  Country: CA (occurrence: CA)
  Receive Date: 20200602
  Receipt Date: 20200602
  Transmission Date: 20200714
  Serious: Yes (Other)
  Sender: FDA-Public Use
  Company Number: CA-ROCHE-2611503

PATIENT

DRUGS (2)
  1. RUXOLITINIB [Suspect]
     Active Substance: RUXOLITINIB
     Indication: MYELOFIBROSIS
     Route: 048
  2. VISMODEGIB. [Suspect]
     Active Substance: VISMODEGIB
     Indication: MYELOFIBROSIS
     Route: 048

REACTIONS (2)
  - Thrombocytopenia [Unknown]
  - Muscle spasms [Unknown]
